FAERS Safety Report 7034834-4 (Version None)
Quarter: 2010Q4

REPORT INFORMATION
  Report Type: 
  Country: None (occurrence: None)
  Receive Date: 20101008
  Receipt Date: 20100929
  Transmission Date: 20110411
  Serious: Yes (Hospitalization)
  Sender: FDA-Public Use
  Company Number: DE-ROCHE-720927

PATIENT
  Sex: Male
  Weight: 84 kg

DRUGS (1)
  1. INTERFERON ALFA-2A [Suspect]
     Dosage: DATE OF LAST DOSE PRIOR TO SAE: 06 MARCH 2009
     Route: 058
     Dates: start: 20070208

REACTIONS (1)
  - IMPAIRED HEALING [None]
